FAERS Safety Report 6929774-2 (Version None)
Quarter: 2010Q3

REPORT INFORMATION
  Report Type: 
  Country: None (occurrence: None)
  Receive Date: 20100817
  Receipt Date: 20100817
  Transmission Date: 20110219
  Serious: No
  Sender: FDA-Public Use
  Company Number: None

PATIENT
  Age: 74 Year
  Sex: Female

DRUGS (7)
  1. ALLOPURINOL [Suspect]
     Dates: start: 20071217, end: 20080415
  2. COLCHICINE [Suspect]
     Dates: start: 20071217, end: 20080415
  3. ZOCOR [Concomitant]
  4. LIPITOR [Concomitant]
  5. LASIX [Concomitant]
  6. HYDRALAZINE [Concomitant]
  7. CARDIA [Concomitant]

REACTIONS (12)
  - ALANINE AMINOTRANSFERASE INCREASED [None]
  - ASPARTATE AMINOTRANSFERASE INCREASED [None]
  - BLOOD ALKALINE PHOSPHATASE INCREASED [None]
  - BLOOD BILIRUBIN INCREASED [None]
  - GOUT [None]
  - HEPATOTOXICITY [None]
  - LIVER DISORDER [None]
  - NAUSEA [None]
  - POLLAKIURIA [None]
  - PRESYNCOPE [None]
  - URINARY TRACT INFECTION [None]
  - VOMITING [None]
